FAERS Safety Report 6163901-2 (Version None)
Quarter: 2009Q2

REPORT INFORMATION
  Report Type: 
  Country: None (occurrence: None)
  Receive Date: 20090422
  Receipt Date: 20090415
  Transmission Date: 20091009
  Serious: No
  Sender: FDA-Public Use
  Company Number: US-B.I. PHARMACEUTICALS,INC./RIDGEFIELD-2009-BP-04781BP

PATIENT
  Age: 90 Year
  Sex: Female

DRUGS (1)
  1. AGGRENOX [Suspect]
     Dates: start: 20080401

REACTIONS (4)
  - ARRHYTHMIA [None]
  - BLOOD GLUCOSE ABNORMAL [None]
  - JOINT SWELLING [None]
  - PAIN IN EXTREMITY [None]
